FAERS Safety Report 5009998-4 (Version None)
Quarter: 2006Q2

REPORT INFORMATION
  Report Type: 
  Country: None (occurrence: None)
  Receive Date: 20060524
  Receipt Date: 20060517
  Transmission Date: 20061013
  Serious: Yes (Other)
  Sender: FDA-Public Use
  Company Number: PHBS2006PT07355

PATIENT
  Age: 51 Year
  Sex: Female

DRUGS (22)
  1. ZOMETA [Suspect]
     Dosage: 4 MG, EVERY 4 WEEKS
     Dates: start: 20030501, end: 20060201
  2. CHEMOTHERAPEUTICS,OTHER [Concomitant]
     Dosage: EVERY 4 WEEKS
     Dates: start: 20010501, end: 20011101
  3. CHEMOTHERAPEUTICS,OTHER [Concomitant]
     Dosage: EVERY 4 WEEKS
     Dates: start: 20021101, end: 20030501
  4. CLONIXIN LYSINATE [Concomitant]
     Route: 048
  5. AMIODARONE HCL [Concomitant]
     Route: 048
  6. CYCLOPHOSPHAMIDE [Concomitant]
     Route: 042
     Dates: start: 20010501, end: 20011101
  7. CYCLOPHOSPHAMIDE [Concomitant]
     Route: 042
     Dates: start: 20021101, end: 20030501
  8. LETROZOLE [Concomitant]
     Route: 048
     Dates: start: 20050301
  9. DOCETAXEL [Concomitant]
     Route: 042
     Dates: start: 20010101, end: 20010301
  10. DOCETAXEL [Concomitant]
     Route: 042
     Dates: start: 20040701, end: 20050201
  11. PARACETAMOL WITH CODEINE PHOSPHATE [Concomitant]
     Route: 048
  12. FLUOROURACIL [Concomitant]
     Route: 042
     Dates: start: 20010501, end: 20011101
  13. FLUOROURACIL [Concomitant]
     Dates: start: 20021101, end: 20030501
  14. OMEPRAZOLE [Concomitant]
     Route: 048
  15. TRAMADOL HYDROCHLORIDE [Concomitant]
     Route: 048
  16. VINORELBINE TARTRATE [Concomitant]
     Dates: start: 20040101, end: 20040401
  17. METHOTREXATE [Concomitant]
     Route: 042
     Dates: start: 20010501, end: 20011101
  18. METHOTREXATE [Concomitant]
     Dates: start: 20021101, end: 20030501
  19. EPIRUBICIN [Concomitant]
     Route: 042
     Dates: start: 20030601, end: 20030801
  20. PARACETAMOL [Concomitant]
     Route: 048
  21. TAMOXIFEN [Concomitant]
     Route: 048
     Dates: start: 20020901, end: 20021101
  22. WARFARIN SODIUM [Concomitant]
     Route: 048

REACTIONS (3)
  - INFLAMMATION [None]
  - OSTEONECROSIS [None]
  - SWELLING [None]
